FAERS Safety Report 4303789-5 (Version None)
Quarter: 2004Q1

REPORT INFORMATION
  Report Type: 
  Country: None (occurrence: None)
  Receive Date: 20040224
  Receipt Date: 20040224
  Transmission Date: 20041129
  Serious: Yes (Hospitalization)
  Sender: FDA-Public Use
  Company Number: None

PATIENT
  Age: 69 Year
  Sex: Male

DRUGS (2)
  1. WARFARIN 5 MG BMS [Suspect]
     Indication: ANTICOAGULANT THERAPY
     Dosage: 4 MG QD ORAL
     Route: 048
  2. ASPIRIN [Suspect]
     Indication: ANTICOAGULANT THERAPY
     Dosage: 325 MG QD ORAL
     Route: 048

REACTIONS (5)
  - GASTRIC ULCER HAEMORRHAGE [None]
  - HAEMATEMESIS [None]
  - HYPOTENSION [None]
  - RETCHING [None]
  - TACHYCARDIA [None]
